FAERS Safety Report 15213622 (Version 1)
Quarter: 2018Q3

REPORT INFORMATION
  Report Type: Other
  Country: ES (occurrence: ES)
  Receive Date: 20180730
  Receipt Date: 20180730
  Transmission Date: 20181010
  Serious: Yes (Disabling)
  Sender: FDA-Public Use
  Company Number: ES-CELLTRION INC.-2018ES021445

PATIENT

DRUGS (4)
  1. SALOFALK                           /00000301/ [Suspect]
     Active Substance: MESALAMINE
     Indication: PRODUCT USED FOR UNKNOWN INDICATION
     Dosage: 100 SACHETS GASTRO?RESISTANT PROLONGED?RELEASE GRANULES
     Route: 065
     Dates: start: 2014
  2. INFLIXIMAB (UNKNOWN) [Suspect]
     Active Substance: INFLIXIMAB
     Indication: PRODUCT USED FOR UNKNOWN INDICATION
     Dosage: UNK
     Route: 065
     Dates: start: 2017, end: 2017
  3. NEXIUM MUPS                        /01479302/ [Concomitant]
     Active Substance: ESOMEPRAZOLE MAGNESIUM
     Dosage: 28 DF
     Route: 065
  4. ADIRO [Concomitant]
     Active Substance: ASPIRIN
     Dosage: 30 DF
     Route: 065

REACTIONS (2)
  - Inflammation [Not Recovered/Not Resolved]
  - Arthralgia [Not Recovered/Not Resolved]

NARRATIVE: CASE EVENT DATE: 2017
